FAERS Safety Report 8465614-0 (Version None)
Quarter: 2012Q2

REPORT INFORMATION
  Report Type: 
  Country: None (occurrence: None)
  Receive Date: 20120621
  Receipt Date: 20120621
  Transmission Date: 20120825
  Serious: No
  Sender: FDA-Public Use
  Company Number: None

PATIENT
  Age: 79 Year
  Sex: Male

DRUGS (7)
  1. REVLIMID [Suspect]
     Indication: MULTIPLE MYELOMA
     Dosage: REVLIMID 25MG DAILY X21D ORALLY
     Route: 048
     Dates: start: 20120502, end: 20120517
  2. PREDNISONE [Concomitant]
  3. PRAVASTATIN [Concomitant]
  4. FLOMAX [Concomitant]
  5. CA CITRATE + VITAMIN D [Concomitant]
  6. PRINZIDE [Concomitant]
  7. M.V.I. [Concomitant]

REACTIONS (3)
  - ABDOMINAL DISCOMFORT [None]
  - SLEEP DISORDER [None]
  - CONSTIPATION [None]
